FAERS Safety Report 6154007-7 (Version None)
Quarter: 2009Q2

REPORT INFORMATION
  Report Type: 
  Country: None (occurrence: None)
  Receive Date: 20090414
  Receipt Date: 20090406
  Transmission Date: 20091009
  Serious: Yes (Other)
  Sender: FDA-Public Use
  Company Number: PHHY2009FR13387

PATIENT
  Sex: Female

DRUGS (6)
  1. ACLASTA [Suspect]
     Dosage: UNK
     Route: 042
     Dates: start: 20090402
  2. CO-TAREG [Suspect]
  3. VOLTAREN [Suspect]
  4. TOFRANIL [Suspect]
  5. VALIUM [Suspect]
  6. LAMALINE [Suspect]

REACTIONS (3)
  - INCOHERENT [None]
  - PAIN [None]
  - SWELLING FACE [None]
